FAERS Safety Report 16332330 (Version 1)
Quarter: 2019Q2

REPORT INFORMATION
  Report Type: Spontaneous
  Country: US (occurrence: GB)
  Receive Date: 20190520
  Receipt Date: 20190520
  Transmission Date: 20190711
  Serious: Yes (Disabling, Other)
  Sender: FDA-Public Use
  Company Number: US-OTSUKA-2019_016906

PATIENT
  Age: 10 Month
  Sex: Female

DRUGS (3)
  1. BUSULFAN. [Suspect]
     Active Substance: BUSULFAN
     Indication: METASTASES TO LIVER
  2. BUSULFAN. [Suspect]
     Active Substance: BUSULFAN
     Indication: NEUROBLASTOMA
  3. BUSULFAN. [Suspect]
     Active Substance: BUSULFAN
     Indication: STEM CELL TRANSPLANT
     Dosage: UNK
     Route: 065

REACTIONS (4)
  - Deafness [Unknown]
  - Bronchiectasis [Unknown]
  - Product use in unapproved indication [Unknown]
  - Hypothyroidism [Unknown]
